FAERS Safety Report 8306536-5 (Version None)
Quarter: 2012Q2

REPORT INFORMATION
  Report Type: 
  Country: None (occurrence: None)
  Receive Date: 20120420
  Receipt Date: 20120420
  Transmission Date: 20120825
  Serious: Yes (Hospitalization)
  Sender: FDA-Public Use
  Company Number: None

PATIENT
  Age: 53 Year
  Sex: Female

DRUGS (1)
  1. LITHIUM CARBONATE [Suspect]
     Dosage: 300 MG BID PO
     Route: 048
     Dates: start: 20110617, end: 20110620

REACTIONS (4)
  - BLOOD UREA INCREASED [None]
  - ATAXIA [None]
  - BALANCE DISORDER [None]
  - BLOOD CREATININE INCREASED [None]
